FAERS Safety Report 7593014-4 (Version None)
Quarter: 2011Q3

REPORT INFORMATION
  Report Type: 
  Country: None (occurrence: None)
  Receive Date: 20110706
  Receipt Date: 20110627
  Transmission Date: 20111222
  Serious: Yes (Other)
  Sender: FDA-Public Use
  Company Number: JP-GLAXOSMITHKLINE-B0730084A

PATIENT
  Sex: Female

DRUGS (2)
  1. PAXIL [Suspect]
     Indication: PRODUCT USED FOR UNKNOWN INDICATION
     Dosage: 40MG PER DAY
     Route: 048
  2. PAXIL [Suspect]
     Dosage: 20MG PER DAY
     Route: 048
     Dates: end: 20110501

REACTIONS (6)
  - DRUG WITHDRAWAL SYNDROME [None]
  - INTESTINAL OBSTRUCTION [None]
  - INSOMNIA [None]
  - TINNITUS [None]
  - SOMNOLENCE [None]
  - FIBROMYALGIA [None]
